FAERS Safety Report 20676956 (Version 11)
Quarter: 2022Q3

REPORT INFORMATION
  Report Type: Other
  Country: CA (occurrence: None)
  Receive Date: 20220406
  Receipt Date: 20220816
  Transmission Date: 20221026
  Serious: Yes (Hospitalization, Other)
  Sender: FDA-Public Use
  Company Number: CA-ROCHE-2954571

PATIENT
  Age: 59 Year
  Sex: Female

DRUGS (17)
  1. OCREVUS [Suspect]
     Active Substance: OCRELIZUMAB
     Indication: Relapsing-remitting multiple sclerosis
     Dosage: 300 MG AT DAY 0 AND 14, THEN 600 MG EVERY 6 MONTH
     Route: 042
     Dates: start: 20211103
  2. OCREVUS [Suspect]
     Active Substance: OCRELIZUMAB
     Route: 042
     Dates: start: 20220602
  3. IMATINIB [Concomitant]
     Active Substance: IMATINIB
     Indication: Leukaemia
  4. MODAFINIL [Concomitant]
     Active Substance: MODAFINIL
  5. BACLOFEN [Concomitant]
     Active Substance: BACLOFEN
  6. CITALOPRAM [Concomitant]
     Active Substance: CITALOPRAM HYDROBROMIDE
  7. IRBESARTAN [Concomitant]
     Active Substance: IRBESARTAN
  8. PANTOPRAZOLE [Concomitant]
     Active Substance: PANTOPRAZOLE
  9. TOPIRAMATE [Concomitant]
     Active Substance: TOPIRAMATE
  10. BETAHISTINE [Concomitant]
     Active Substance: BETAHISTINE
  11. METOCLOPRAMIDE [Concomitant]
     Active Substance: METOCLOPRAMIDE
  12. ARIPIPRAZOLE [Concomitant]
     Active Substance: ARIPIPRAZOLE
  13. VITAMIN C [Concomitant]
     Active Substance: ASCORBIC ACID
  14. ZINC [Concomitant]
     Active Substance: ZINC
  15. CLONAZEPAM [Concomitant]
     Active Substance: CLONAZEPAM
  16. SULFATRIM [Concomitant]
     Active Substance: SULFAMETHOXAZOLE\TRIMETHOPRIM
     Dates: start: 2022
  17. DISULFIRAM [Concomitant]
     Active Substance: DISULFIRAM

REACTIONS (10)
  - Malaise [Recovered/Resolved]
  - Insomnia [Recovered/Resolved]
  - Infusion related reaction [Recovered/Resolved]
  - Headache [Not Recovered/Not Resolved]
  - SARS-CoV-2 test positive [Recovered/Resolved with Sequelae]
  - Suicidal ideation [Not Recovered/Not Resolved]
  - Infusion related reaction [Recovered/Resolved]
  - Depression [Recovered/Resolved]
  - Suicidal ideation [Recovered/Resolved]
  - Dizziness [Unknown]

NARRATIVE: CASE EVENT DATE: 20211103
